FAERS Safety Report 12434115 (Version 3)
Quarter: 2019Q1

REPORT INFORMATION
  Report Type: Spontaneous
  Country: US (occurrence: US)
  Receive Date: 20160603
  Receipt Date: 20190315
  Transmission Date: 20190417
  Serious: Yes (Hospitalization, Other)
  Sender: FDA-Public Use
  Company Number: US-DSJP-DSU-2015-122804

PATIENT

DRUGS (3)
  1. BENICAR [Suspect]
     Active Substance: OLMESARTAN MEDOXOMIL
     Indication: PRODUCT USED FOR UNKNOWN INDICATION
     Dosage: UNK
     Dates: start: 2005
  2. BENICAR HCT [Suspect]
     Active Substance: HYDROCHLOROTHIAZIDE\OLMESARTAN MEDOXOMIL
     Dosage: 40/25MG DAILY
     Dates: start: 200710
  3. BENICAR HCT [Suspect]
     Active Substance: HYDROCHLOROTHIAZIDE\OLMESARTAN MEDOXOMIL
     Indication: HYPERTENSION
     Dosage: 40/12.5 MG, UNK
     Dates: start: 20060331, end: 200711

REACTIONS (14)
  - Lymphocytosis [Unknown]
  - Haemorrhoids [Unknown]
  - Erosive oesophagitis [Unknown]
  - Diverticulum intestinal [Unknown]
  - Sprue-like enteropathy [Recovering/Resolving]
  - Barrett^s oesophagus [Unknown]
  - Large intestine polyp [Unknown]
  - Paraesthesia [Unknown]
  - Anaemia [Unknown]
  - Hiatus hernia [Not Recovered/Not Resolved]
  - Dizziness [Unknown]
  - Renal failure [Unknown]
  - Coeliac disease [Recovering/Resolving]
  - Large intestine benign neoplasm [Unknown]

NARRATIVE: CASE EVENT DATE: 2007
